FAERS Safety Report 23561857 (Version 1)
Quarter: 2024Q1

REPORT INFORMATION
  Report Type: Spontaneous
  Country: US (occurrence: US)
  Receive Date: 20240225
  Receipt Date: 20240225
  Transmission Date: 20240409
  Serious: Yes (Death)
  Sender: FDA-Public Use
  Company Number: US-BAYER-2024A028735

PATIENT
  Age: 51 Year
  Sex: Female
  Weight: 52.154 kg

DRUGS (19)
  1. XARELTO [Suspect]
     Active Substance: RIVAROXABAN
     Indication: Product used for unknown indication
     Route: 048
  2. ADEMPAS [Suspect]
     Active Substance: RIOCIGUAT
     Indication: Pulmonary arterial hypertension
     Dosage: UNK
     Route: 065
     Dates: start: 20240201
  3. ADEMPAS [Suspect]
     Active Substance: RIOCIGUAT
     Indication: Pulmonary arterial hypertension
     Dosage: 1.5 MG, TID
     Route: 048
  4. SLYND [Concomitant]
     Active Substance: DROSPIRENONE
  5. TYLENOL [Concomitant]
     Active Substance: ACETAMINOPHEN
  6. EPINEPHRINE [Concomitant]
     Active Substance: EPINEPHRINE
  7. PFIZER-BIONTECH COVID-19 VACCINE [Concomitant]
     Active Substance: TOZINAMERAN
  8. BACLOFEN [Concomitant]
     Active Substance: BACLOFEN
  9. ALLOPURINOL [Concomitant]
     Active Substance: ALLOPURINOL
  10. LINZESS [Concomitant]
     Active Substance: LINACLOTIDE
  11. FLOVENT HFA [Concomitant]
     Active Substance: FLUTICASONE PROPIONATE
  12. LIDOCAINE [Concomitant]
     Active Substance: LIDOCAINE
  13. SPIRONOLACTONE [Concomitant]
     Active Substance: SPIRONOLACTONE
  14. TREPROSTINIL [Concomitant]
     Active Substance: TREPROSTINIL
  15. OXYGEN [Concomitant]
     Active Substance: OXYGEN
  16. KLONOPIN [Concomitant]
     Active Substance: CLONAZEPAM
  17. HALOPERIDOL [Concomitant]
     Active Substance: HALOPERIDOL
  18. FAMOTIDINE [Concomitant]
     Active Substance: FAMOTIDINE
  19. TORSEMIDE [Concomitant]
     Active Substance: TORSEMIDE

REACTIONS (1)
  - Death [Fatal]
